FAERS Safety Report 6964389-1 (Version None)
Quarter: 2010Q3

REPORT INFORMATION
  Report Type: 
  Country: None (occurrence: None)
  Receive Date: 20100903
  Receipt Date: 20100820
  Transmission Date: 20110219
  Serious: Yes (Hospitalization)
  Sender: FDA-Public Use
  Company Number: ES-RANBAXY-2010RR-37665

PATIENT
  Age: 65 Year
  Sex: Female

DRUGS (4)
  1. SERTRALINE HYDROCHLORIDE [Suspect]
     Indication: AFFECTIVE DISORDER
     Dosage: 50 MG, UNK
  2. DOXYCYCLINE [Suspect]
     Dosage: 100 MG, BID
     Route: 048
  3. LEVOFLOXACIN [Suspect]
     Dosage: 500 MG, UNK
     Route: 048
  4. COTRIM [Suspect]
     Indication: URINARY TRACT INFECTION
     Dosage: 80MG/400 MG
     Route: 048

REACTIONS (1)
  - HEPATITIS TOXIC [None]
